FAERS Safety Report 4486475-0 (Version None)
Quarter: 2004Q4

REPORT INFORMATION
  Report Type: 
  Country: None (occurrence: None)
  Receive Date: 20041026
  Receipt Date: 20041026
  Transmission Date: 20050328
  Serious: Yes (Hospitalization)
  Sender: FDA-Public Use
  Company Number: None

PATIENT
  Age: 42 Year
  Sex: Female

DRUGS (2)
  1. CLINDAMYCIN HCL [Suspect]
     Indication: PNEUMOCYSTIS CARINII PNEUMONIA
     Dates: start: 20040120, end: 20040202
  2. PRIMAQUINE [Suspect]
     Dates: start: 20040120, end: 20040202

REACTIONS (7)
  - CLOSTRIDIUM COLITIS [None]
  - COUGH [None]
  - DYSPNOEA [None]
  - HAEMOLYSIS [None]
  - NAUSEA [None]
  - RASH [None]
  - VOMITING [None]
